FAERS Safety Report 23979195 (Version 3)
Quarter: 2024Q3

REPORT INFORMATION
  Report Type: Report from Study
  Country: ZA (occurrence: ZA)
  Receive Date: 20240615
  Receipt Date: 20240722
  Transmission Date: 20241016
  Serious: Yes (Hospitalization, Other)
  Sender: NOVARTIS
  Company Number: ZA-002147023-NVSC2024ZA124519

PATIENT
  Age: 32 Year
  Sex: Female

DRUGS (2)
  1. COSENTYX [Suspect]
     Active Substance: SECUKINUMAB
     Indication: Ankylosing spondylitis
     Dosage: 150 MG, QMO
     Route: 058
  2. COSENTYX [Suspect]
     Active Substance: SECUKINUMAB
     Indication: Axial spondyloarthritis
     Dosage: 150 MG, QMO
     Route: 058

REACTIONS (3)
  - Burnout syndrome [Unknown]
  - Depression [Unknown]
  - Anxiety [Unknown]

NARRATIVE: CASE EVENT DATE: 20240607
